FAERS Safety Report 23862601 (Version 1)
Quarter: 2024Q2

REPORT INFORMATION
  Report Type: Spontaneous
  Country: GB (occurrence: GB)
  Receive Date: 20240516
  Receipt Date: 20240516
  Transmission Date: 20240716
  Serious: Yes (Other)
  Sender: FDA-Public Use
  Company Number: GB-PFIZER INC-PV202400063431

PATIENT
  Age: 21 Month
  Sex: Male

DRUGS (5)
  1. METHOTREXATE SODIUM [Suspect]
     Active Substance: METHOTREXATE SODIUM
     Indication: Primitive neuroectodermal tumour
     Dosage: 5 CYCLES
  2. VINCRISTINE SULFATE [Suspect]
     Active Substance: VINCRISTINE SULFATE
     Indication: Primitive neuroectodermal tumour
     Dosage: 5 CYCLES
  3. CISPLATIN [Suspect]
     Active Substance: CISPLATIN
     Indication: Primitive neuroectodermal tumour
     Dosage: 5 CYCLES
  4. CYCLOPHOSPHAMIDE [Suspect]
     Active Substance: CYCLOPHOSPHAMIDE
     Indication: Primitive neuroectodermal tumour
     Dosage: 5 CYCLES
  5. ETOPOSIDE [Suspect]
     Active Substance: ETOPOSIDE
     Indication: Primitive neuroectodermal tumour
     Dosage: 5 CYCLES

REACTIONS (2)
  - Sepsis [Unknown]
  - Off label use [Unknown]
